FAERS Safety Report 13360634 (Version 2)
Quarter: 2017Q2

REPORT INFORMATION
  Report Type: Report from Study
  Country: US (occurrence: US)
  Receive Date: 20170322
  Receipt Date: 20170406
  Transmission Date: 20170830
  Serious: Yes (Hospitalization, Other)
  Sender: FDA-Public Use
  Company Number: US-ACTELION-A-NJ2016-138305

PATIENT
  Age: 44 Year
  Sex: Female
  Weight: 88.44 kg

DRUGS (6)
  1. COUMADIN [Concomitant]
     Active Substance: WARFARIN SODIUM
  2. UPTRAVI [Suspect]
     Active Substance: SELEXIPAG
     Indication: PULMONARY HYPERTENSION
     Dosage: 1600 MCG, BID
     Route: 048
     Dates: start: 20160224
  3. REMODULIN [Suspect]
     Active Substance: TREPROSTINIL
     Indication: PULMONARY HYPERTENSION
     Dosage: 0.020 MCG/KG
     Route: 058
     Dates: start: 20170208
  4. ADEMPAS [Concomitant]
     Active Substance: RIOCIGUAT
  5. AMLODIPINE [Concomitant]
     Active Substance: AMLODIPINE BESYLATE
  6. UPTRAVI [Suspect]
     Active Substance: SELEXIPAG
     Dosage: 1400 MCG, BID
     Route: 048
     Dates: end: 2017

REACTIONS (6)
  - Disease progression [Unknown]
  - Dyspepsia [Recovered/Resolved]
  - Palpitations [Unknown]
  - Infusion site pain [Recovering/Resolving]
  - Headache [Unknown]
  - Pulmonary thrombosis [Unknown]
